FAERS Safety Report 9276515 (Version 1)
Quarter: 2013Q2

REPORT INFORMATION
  Report Type: Spontaneous
  Country: US (occurrence: US)
  Receive Date: 20130507
  Receipt Date: 20130507
  Transmission Date: 20140414
  Serious: No
  Sender: FDA-Public Use
  Company Number: US-PFIZER INC-2013139912

PATIENT
  Age: 79 Year
  Sex: Female
  Weight: 86.17 kg

DRUGS (18)
  1. XELJANZ [Suspect]
     Dosage: 5 MG, TAKE 1 TABLET 2X/DAY
     Route: 048
     Dates: start: 20130207, end: 20130410
  2. HOMATROPINE/HYDROCODONE [Concomitant]
     Dosage: UNK
  3. PREDNISONE [Concomitant]
     Dosage: 1 MG, UNK
  4. METHOTREXATE [Concomitant]
     Dosage: 2.5 MG, UNK
  5. AMLODIPINE [Concomitant]
     Dosage: 2.5 MG, UNK
  6. ALBUTEROL [Concomitant]
     Dosage: 90 UG, UNK
  7. OMEPRAZOLE [Concomitant]
     Dosage: 10 MG, UNK
  8. AVALIDE [Concomitant]
     Dosage: 150-12.5, UNK
  9. ENABLEX [Concomitant]
     Dosage: 7.5 MG, UNK
  10. SIMVASTATIN [Concomitant]
     Dosage: 10 MG, UNK
  11. SINGULAIR [Concomitant]
     Dosage: 10 MG, UNK
  12. FLOVENT [Concomitant]
     Dosage: 110 UG, UNK
  13. PRO-AIR [Concomitant]
     Dosage: UNK
  14. FOLIC ACID [Concomitant]
     Dosage: UNK
  15. ASPIRIN [Concomitant]
     Dosage: 81 MG, UNK
  16. VITAMIN C [Concomitant]
     Dosage: 500 MG, UNK
  17. VITAMIN D [Concomitant]
     Dosage: 1000 UNIT, UNK
  18. VITAMIN E [Concomitant]
     Dosage: 100 UNIT, UNK

REACTIONS (1)
  - Arthralgia [Unknown]
